FAERS Safety Report 4264226-2 (Version None)
Quarter: 2004Q1

REPORT INFORMATION
  Report Type: 
  Country: None (occurrence: None)
  Receive Date: 20040102
  Receipt Date: 20031223
  Transmission Date: 20041129
  Serious: Yes (Hospitalization)
  Sender: FDA-Public Use
  Company Number: US-JNJFOC-20031105220

PATIENT
  Age: 50 Year
  Sex: Male
  Weight: 64.8644 kg

DRUGS (1)
  1. REMICADE [Suspect]
     Indication: CROHN'S DISEASE
     Dosage: HAS BEEN TREATED EVERY EIGHT WEEKS FOR LAST YEAR AND A HALF; INTRAVENOUS
     Route: 042
     Dates: start: 20011201

REACTIONS (3)
  - HISTOPLASMOSIS [None]
  - PNEUMONIA [None]
  - PYREXIA [None]
